FAERS Safety Report 17649510 (Version 1)
Quarter: 2020Q2

REPORT INFORMATION
  Report Type: Spontaneous
  Country: US (occurrence: US)
  Receive Date: 20200409
  Receipt Date: 20200409
  Transmission Date: 20200713
  Serious: No
  Sender: FDA-Public Use
  Company Number: US-AUROBINDO-AUR-APL-2020-011809

PATIENT
  Age: 39 Year
  Sex: Male

DRUGS (1)
  1. LORAZEPAM 1MG [Suspect]
     Active Substance: LORAZEPAM
     Indication: PRODUCT USED FOR UNKNOWN INDICATION
     Dosage: UNK
     Route: 065

REACTIONS (3)
  - Palpitations [Unknown]
  - Initial insomnia [Unknown]
  - Anxiety [Unknown]
